FAERS Safety Report 7948790-5 (Version None)
Quarter: 2011Q4

REPORT INFORMATION
  Report Type: 
  Country: None (occurrence: None)
  Receive Date: 20111130
  Receipt Date: 20111122
  Transmission Date: 20120403
  Serious: Yes (Other)
  Sender: FDA-Public Use
  Company Number: US-JNJFOC-20111109692

PATIENT
  Sex: Female
  Weight: 112.04 kg

DRUGS (12)
  1. FENTANYL-100 [Suspect]
     Indication: BACK PAIN
     Route: 062
     Dates: start: 20111025
  2. SIMVASTATIN [Concomitant]
     Route: 048
     Dates: start: 20090101
  3. DURAGESIC-100 [Suspect]
     Indication: BACK PAIN
     Route: 062
     Dates: start: 20100101, end: 20111025
  4. LANSOPRAZOLE [Concomitant]
     Indication: GASTROOESOPHAGEAL REFLUX DISEASE
     Route: 048
     Dates: start: 20080101
  5. DILTIAZEM HCL [Concomitant]
     Route: 048
     Dates: start: 20080101
  6. WATER PILL NOS [Concomitant]
     Route: 048
     Dates: start: 20080101
  7. GENITO URINARY SYSTEM AND SEX HORMONES [Concomitant]
     Route: 048
     Dates: start: 20080101
  8. MUCINEX [Concomitant]
     Route: 048
  9. HYDROCODONE BITARTRATE AND ACETAMINOPHEN [Concomitant]
     Indication: PAIN
     Dosage: 10/500 MG EVERY 4 HOURS AS NEEDED
     Route: 048
     Dates: start: 20080101
  10. FLUTICASONE PROPIONATE [Concomitant]
     Indication: NASAL DISORDER
     Route: 045
     Dates: start: 20080101
  11. ADVAIR DISKUS 100/50 [Concomitant]
     Indication: ASTHMA
     Dosage: DAILY 2 PUFFS
     Route: 055
     Dates: start: 20080101
  12. ALBUTEROL BY INHALER + NEBULIZER [Concomitant]
     Indication: ASTHMA
     Dosage: DAILY 4 TIMES
     Route: 055
     Dates: start: 20080101

REACTIONS (4)
  - DEEP VEIN THROMBOSIS [None]
  - MOOD SWINGS [None]
  - PRODUCT QUALITY ISSUE [None]
  - DRUG ADMINISTERED AT INAPPROPRIATE SITE [None]
